FAERS Safety Report 6826289-7 (Version None)
Quarter: 2010Q2

REPORT INFORMATION
  Report Type: 
  Country: None (occurrence: None)
  Receive Date: 20100520
  Receipt Date: 20090818
  Transmission Date: 20101027
  Serious: Yes (Other)
  Sender: FDA-Public Use
  Company Number: 2009218594

PATIENT
  Age: 69 Year
  Sex: Female
  Weight: 88 kg

DRUGS (5)
  1. PROVERA [Suspect]
     Indication: HORMONE REPLACEMENT THERAPY
     Dosage: 10 MG, ORAL ; 5 MG, ORAL
     Route: 048
     Dates: start: 19890828, end: 19890919
  2. PROVERA [Suspect]
     Indication: HORMONE REPLACEMENT THERAPY
     Dosage: 10 MG, ORAL ; 5 MG, ORAL
     Route: 048
     Dates: start: 19890926, end: 19920602
  3. PREMARIN [Suspect]
     Indication: HORMONE REPLACEMENT THERAPY
     Dosage: 2.5 MG
     Dates: start: 19880801, end: 20001201
  4. HYDROCHLOROTHIAZIDE [Concomitant]
  5. LIPITOR [Concomitant]

REACTIONS (1)
  - BREAST CANCER FEMALE [None]
